FAERS Safety Report 23631336 (Version 1)
Quarter: 2024Q1

REPORT INFORMATION
  Report Type: Spontaneous
  Country: US (occurrence: None)
  Receive Date: 20240313
  Receipt Date: 20240313
  Transmission Date: 20240410
  Serious: No
  Sender: FDA-Public Use
  Company Number: None

PATIENT
  Sex: Female

DRUGS (1)
  1. JAKAFI [Suspect]
     Active Substance: RUXOLITINIB
     Dosage: 60 TABLETS TWICE A DAY TAKEN BY MOUTH
     Route: 048
     Dates: start: 20210303

REACTIONS (1)
  - Pelvic fracture [None]
